FAERS Safety Report 8866117 (Version 1)
Quarter: 2012Q4

REPORT INFORMATION
  Report Type: 
  Country: IT (occurrence: IT)
  Receive Date: 20121025
  Receipt Date: 20121025
  Transmission Date: 20130627
  Serious: Yes (Hospitalization)
  Sender: FDA-Public Use
  Company Number: IT-MYLANLABS-2012S1021498

PATIENT
  Age: 25 Year
  Sex: Male

DRUGS (2)
  1. DELORAZEPAM [Suspect]
     Indication: INSOMNIA
     Route: 048
     Dates: start: 20120922, end: 20120922
  2. LORAZEPAM [Suspect]
     Indication: INSOMNIA
     Route: 048
     Dates: start: 20120922, end: 20120922

REACTIONS (3)
  - Dysarthria [Recovered/Resolved]
  - Sopor [Recovered/Resolved]
  - Drug abuse [Recovered/Resolved]
